FAERS Safety Report 7214986-3 (Version None)
Quarter: 2011Q1

REPORT INFORMATION
  Report Type: 
  Country: None (occurrence: None)
  Receive Date: 20110107
  Receipt Date: 20100625
  Transmission Date: 20110831
  Serious: No
  Sender: FDA-Public Use
  Company Number: A0867207A

PATIENT
  Sex: Female

DRUGS (6)
  1. GABAPENTIN [Concomitant]
  2. LEVOTHYROXINE [Concomitant]
  3. WELCHOL [Concomitant]
  4. LISINOPRIL [Concomitant]
  5. LOVAZA [Suspect]
     Indication: BLOOD CHOLESTEROL INCREASED
     Dosage: 3CAP UNKNOWN
     Route: 048
     Dates: start: 20091201
  6. MULTIVITAMIN [Concomitant]

REACTIONS (1)
  - DRUG INEFFECTIVE [None]
